FAERS Safety Report 4801108-9 (Version None)
Quarter: 2005Q4

REPORT INFORMATION
  Report Type: 
  Country: None (occurrence: None)
  Receive Date: 20051011
  Receipt Date: 20051004
  Transmission Date: 20060501
  Serious: No
  Sender: FDA-Public Use
  Company Number: 805#9#2005-00062

PATIENT
  Age: 13 Day
  Sex: Female

DRUGS (2)
  1. PROSTANDIN                (ALPROSTADIL (PAOD)) [Suspect]
     Indication: HEART DISEASE CONGENITAL
     Dosage: INTRAVENOUS DRIP
     Route: 041
     Dates: start: 20050806, end: 20050823
  2. AMPICILLIN [Concomitant]

REACTIONS (1)
  - CARDIAC FAILURE [None]
